FAERS Safety Report 10026032 (Version 1)
Quarter: 2014Q1

REPORT INFORMATION
  Report Type: Spontaneous
  Country: US (occurrence: US)
  Receive Date: 20140320
  Receipt Date: 20140320
  Transmission Date: 20141002
  Serious: Yes (Other)
  Sender: FDA-Public Use
  Company Number: US-LUNDBECK-DKLU1098277

PATIENT
  Sex: 0

DRUGS (3)
  1. ONFI (ORAL SUSPENSION) [Suspect]
     Indication: PRODUCT USED FOR UNKNOWN INDICATION
     Dates: start: 201309
  2. ONFI (ORAL SUSPENSION) [Suspect]
  3. ONFI [Suspect]
     Indication: PRODUCT USED FOR UNKNOWN INDICATION
     Dates: end: 201309

REACTIONS (1)
  - Convulsion [Unknown]
